FAERS Safety Report 8347762-9 (Version None)
Quarter: 2012Q2

REPORT INFORMATION
  Report Type: 
  Country: None (occurrence: None)
  Receive Date: 20120509
  Receipt Date: 20120502
  Transmission Date: 20120825
  Serious: Yes (Hospitalization, Congenital Anomaly)
  Sender: FDA-Public Use
  Company Number: US-GLAXOSMITHKLINE-A0930793A

PATIENT
  Sex: Male
  Weight: 1.9 kg

DRUGS (5)
  1. BETAMETHASONE [Concomitant]
  2. STADOL [Concomitant]
  3. MAGNESIUM [Concomitant]
  4. PAXIL [Suspect]
     Indication: ANXIETY
     Dosage: 20MG PER DAY
     Route: 064
     Dates: start: 20000209
  5. AMPICILLIN [Concomitant]

REACTIONS (19)
  - INTRAVENTRICULAR HAEMORRHAGE [None]
  - DEVICE RELATED INFECTION [None]
  - PREMATURE BABY [None]
  - HYDROCELE [None]
  - MATERNAL DRUGS AFFECTING FOETUS [None]
  - DEHYDRATION [None]
  - FOETAL EXPOSURE DURING PREGNANCY [None]
  - HYPERBILIRUBINAEMIA [None]
  - ROSEOLA [None]
  - NEONATAL RESPIRATORY DISTRESS SYNDROME [None]
  - VOMITING [None]
  - CONGENITAL TORTICOLLIS [None]
  - INFANTILE APNOEIC ATTACK [None]
  - OTITIS MEDIA [None]
  - DEVICE FAILURE [None]
  - CONGENITAL HYDROCEPHALUS [None]
  - ATTENTION DEFICIT/HYPERACTIVITY DISORDER [None]
  - GASTROOESOPHAGEAL REFLUX DISEASE [None]
  - SEPSIS NEONATAL [None]
